FAERS Safety Report 15761375 (Version 1)
Quarter: 2018Q4

REPORT INFORMATION
  Report Type: Spontaneous
  Country: US (occurrence: US)
  Receive Date: 20181226
  Receipt Date: 20181226
  Transmission Date: 20190205
  Serious: No
  Sender: FDA-Public Use
  Company Number: None

PATIENT
  Age: 49 Year
  Sex: Male
  Weight: 130.5 kg

DRUGS (1)
  1. ZOLPIDEM TARTRATE. [Suspect]
     Active Substance: ZOLPIDEM TARTRATE
     Indication: INSOMNIA
     Dosage: ?          QUANTITY:30 TABLET(S);?
     Route: 048
     Dates: start: 20181001, end: 20181225

REACTIONS (6)
  - Drug ineffective [None]
  - Influenza like illness [None]
  - Anger [None]
  - Malaise [None]
  - Product substitution issue [None]
  - Sleep disorder [None]

NARRATIVE: CASE EVENT DATE: 20181001
